FAERS Safety Report 10725100 (Version 1)
Quarter: 2015Q1

REPORT INFORMATION
  Report Type: Spontaneous
  Country: US (occurrence: None)
  Receive Date: 20150116
  Receipt Date: 20150116
  Transmission Date: 20150721
  Serious: Yes (Other)
  Sender: FDA-Public Use
  Company Number: INT_00614_2015

PATIENT
  Age: 67 Year
  Sex: Female

DRUGS (7)
  1. IFOSFAMIDE. [Suspect]
     Active Substance: IFOSFAMIDE
     Indication: OVARIAN CANCER
     Dosage: DAILY OVER 90 MIN FOR CYCLES 1-3] IV ([1 G/M2 DAILY OVER 90 MIN FOR CYCLE 4] IV
     Route: 042
  2. MESNA. [Concomitant]
     Active Substance: MESNA
  3. METOCLOPRAMIDE. [Concomitant]
     Active Substance: METOCLOPRAMIDE
  4. DEXAMETHASONE. [Concomitant]
     Active Substance: DEXAMETHASONE
  5. APREPITANT. [Concomitant]
     Active Substance: APREPITANT
  6. CISPLATIN (HQ SPECIALTY) [Suspect]
     Active Substance: CISPLATIN
     Indication: OVARIAN CANCER
     Dosage: DAILY OVER 90 MIN, CYCLES 1-4, INTRAVENOUS
     Route: 042
  7. ONDANSETRON [Concomitant]
     Active Substance: ONDANSETRON

REACTIONS (6)
  - Coma [None]
  - Drug interaction [None]
  - Neurotoxicity [None]
  - Febrile neutropenia [None]
  - Vomiting [None]
  - Nausea [None]
